FAERS Safety Report 18208326 (Version 2)
Quarter: 2020Q3

REPORT INFORMATION
  Report Type: Spontaneous
  Country: BR (occurrence: BR)
  Receive Date: 20200828
  Receipt Date: 20200908
  Transmission Date: 20201103
  Serious: No
  Sender: FDA-Public Use
  Company Number: BR-009507513-2008BRA013202

PATIENT
  Age: 79 Year
  Sex: Female
  Weight: 50 kg

DRUGS (11)
  1. NASONEX [Suspect]
     Active Substance: MOMETASONE FUROATE
     Indication: ASTHMA
  2. SYNTHROID [Concomitant]
     Active Substance: LEVOTHYROXINE SODIUM
     Indication: HYPERTHYROIDISM
     Dosage: 100 MICROGRAM, QD (1 TABLET ? 100 MCG, DAILY)
     Dates: start: 1990
  3. NASONEX [Suspect]
     Active Substance: MOMETASONE FUROATE
     Indication: HYPERSENSITIVITY
     Dosage: 1 JET IN EACH NOSTRIL TWICE DAILY
  4. SYNTHROID [Concomitant]
     Active Substance: LEVOTHYROXINE SODIUM
     Dosage: 112 MICROGRAM, QW (1 TABLET ? 112 MCG, PER WEEK)
  5. BENZALKONIUM CHLORIDE (+) SODIUM CHLORIDE [Concomitant]
     Dosage: 1 DROP IN EACH NOSTRIL TWICE DAILY FOR 40 DAYS
     Dates: start: 20200813
  6. NASONEX [Suspect]
     Active Substance: MOMETASONE FUROATE
     Indication: HYPERSENSITIVITY
     Dosage: 1 JET IN EACH NOSTRIL TWICE DAILY FOR 40 DAYS
     Dates: start: 20200813
  7. EBASTEL [Suspect]
     Active Substance: EBASTINE
     Dosage: 10 MILLIGRAM, QD FOR 10 DAYS
     Dates: start: 202008
  8. DIOVAN [Concomitant]
     Active Substance: VALSARTAN
     Indication: HYPERTENSION
     Dosage: 160 MILLIGRAM AT NIGHT
  9. CALCORT [Concomitant]
     Active Substance: DEFLAZACORT
     Dosage: 6 MILLIGRAM, TID (FOR 5 DAYS)
     Dates: start: 20200813
  10. NASONEX [Suspect]
     Active Substance: MOMETASONE FUROATE
     Indication: ASTHMA
  11. SERETIDE [Concomitant]
     Active Substance: FLUTICASONE PROPIONATE\SALMETEROL XINAFOATE
     Indication: ASTHMA
     Dosage: UNK, BID

REACTIONS (6)
  - Blood cholesterol increased [Unknown]
  - Product use in unapproved indication [Unknown]
  - Hypersensitivity [Unknown]
  - Osteoporosis [Unknown]
  - Poor quality device used [Unknown]
  - Device malfunction [Unknown]

NARRATIVE: CASE EVENT DATE: 2010
